FAERS Safety Report 15463128 (Version 2)
Quarter: 2019Q2

REPORT INFORMATION
  Report Type: Spontaneous
  Country: AU (occurrence: AU)
  Receive Date: 20181004
  Receipt Date: 20190402
  Transmission Date: 20190711
  Serious: Yes (Other)
  Sender: FDA-Public Use
  Company Number: AU-SUN PHARMACEUTICAL INDUSTRIES LTD-2018R1-186140

PATIENT
  Age: 53 Year
  Sex: Female

DRUGS (1)
  1. PROPYLTHIOURACIL. [Suspect]
     Active Substance: PROPYLTHIOURACIL
     Indication: HYPERTHYROIDISM
     Route: 065

REACTIONS (6)
  - Thrombocytopenia [Unknown]
  - Acute kidney injury [Recovering/Resolving]
  - Vasculitis [Recovering/Resolving]
  - Haematuria [Recovering/Resolving]
  - Disseminated intravascular coagulation [Unknown]
  - Proteinuria [Not Recovered/Not Resolved]
